FAERS Safety Report 16418400 (Version 1)
Quarter: 2019Q2

REPORT INFORMATION
  Report Type: Report from Study
  Country: US (occurrence: US)
  Receive Date: 20190612
  Receipt Date: 20190612
  Transmission Date: 20190711
  Serious: Yes (Hospitalization, Other)
  Sender: FDA-Public Use
  Company Number: US-EMD SERONO-9095965

PATIENT
  Sex: Female

DRUGS (2)
  1. REBIF [Suspect]
     Active Substance: INTERFERON BETA-1A
     Route: 058
     Dates: start: 2019
  2. REBIF [Suspect]
     Active Substance: INTERFERON BETA-1A
     Indication: MULTIPLE SCLEROSIS
     Route: 058
     Dates: start: 20141024, end: 2019

REACTIONS (5)
  - Renal failure [Unknown]
  - Gastrostomy [Unknown]
  - Tracheostomy [Unknown]
  - Decubitus ulcer [Unknown]
  - Systemic infection [Unknown]

NARRATIVE: CASE EVENT DATE: 2019
